FAERS Safety Report 20421575 (Version 2)
Quarter: 2022Q2

REPORT INFORMATION
  Report Type: Spontaneous
  Country: IT (occurrence: IT)
  Receive Date: 20220203
  Receipt Date: 20220629
  Transmission Date: 20220721
  Serious: Yes (Hospitalization, Other)
  Sender: FDA-Public Use
  Company Number: IT-PFIZER INC-202200148319

PATIENT
  Age: 73 Year
  Sex: Female

DRUGS (3)
  1. SIROLIMUS [Suspect]
     Active Substance: SIROLIMUS
     Indication: Perivascular epithelioid cell tumour
     Dosage: 5 MG
  2. SIROLIMUS [Suspect]
     Active Substance: SIROLIMUS
     Dosage: 4 MG
  3. EXEMESTANE [Concomitant]
     Active Substance: EXEMESTANE
     Indication: Perivascular epithelioid cell tumour
     Dosage: UNK

REACTIONS (1)
  - Pulmonary toxicity [Unknown]
